FAERS Safety Report 17892768 (Version 7)
Quarter: 2021Q1

REPORT INFORMATION
  Report Type: Report from Study
  Country: None (occurrence: CO)
  Receive Date: 20200613
  Receipt Date: 20210219
  Transmission Date: 20210419
  Serious: Yes (Hospitalization, Other)
  Sender: FDA-Public Use
  Company Number: CO-ABBVIE-20K-036-3443818-00

PATIENT
  Age: 72 Year
  Sex: Male
  Weight: 64 kg

DRUGS (4)
  1. ZEMPLAR [Suspect]
     Active Substance: PARICALCITOL
     Route: 042
     Dates: start: 2020
  2. ZEMPLAR [Suspect]
     Active Substance: PARICALCITOL
     Route: 042
  3. ZEMPLAR [Suspect]
     Active Substance: PARICALCITOL
     Indication: CHRONIC KIDNEY DISEASE
     Route: 042
     Dates: start: 2020, end: 2020
  4. ZEMPLAR [Suspect]
     Active Substance: PARICALCITOL
     Indication: HYPERPARATHYROIDISM SECONDARY
     Route: 042
     Dates: start: 20140424, end: 20200512

REACTIONS (16)
  - Complication associated with device [Unknown]
  - Hypotension [Recovering/Resolving]
  - Respiratory failure [Recovering/Resolving]
  - Pain [Recovering/Resolving]
  - Blood phosphorus abnormal [Recovering/Resolving]
  - Gait inability [Unknown]
  - Inguinal hernia [Recovering/Resolving]
  - Weight decreased [Recovering/Resolving]
  - Skin disorder [Recovering/Resolving]
  - Blood phosphorus increased [Recovering/Resolving]
  - Arthropathy [Recovering/Resolving]
  - Testicular disorder [Recovering/Resolving]
  - Coagulopathy [Recovering/Resolving]
  - Muscular weakness [Recovering/Resolving]
  - Diarrhoea [Recovering/Resolving]
  - COVID-19 [Recovering/Resolving]

NARRATIVE: CASE EVENT DATE: 202006
